FAERS Safety Report 5804051-1 (Version None)
Quarter: 2008Q3

REPORT INFORMATION
  Report Type: 
  Country: None (occurrence: None)
  Receive Date: 20080703
  Receipt Date: 20070612
  Transmission Date: 20090109
  Serious: Yes (Other)
  Sender: FDA-Public Use
  Company Number: WAES 0704USA05119

PATIENT
  Age: 39 Year
  Sex: Male
  Weight: 102.0593 kg

DRUGS (2)
  1. HYZAAR [Suspect]
     Indication: BLOOD PRESSURE ABNORMAL
     Dosage: 100-25 MG/DAILY/PO
     Route: 048
     Dates: start: 20051001, end: 20070315
  2. THERAPY UNSPECIFIED [Concomitant]

REACTIONS (2)
  - HYPOMAGNESAEMIA [None]
  - RENAL FAILURE [None]
